FAERS Safety Report 13367891 (Version 1)
Quarter: 2017Q1

REPORT INFORMATION
  Report Type: Spontaneous
  Country: US (occurrence: US)
  Receive Date: 20170324
  Receipt Date: 20170324
  Transmission Date: 20170429
  Serious: No
  Sender: FDA-Public Use
  Company Number: US-INCYTE CORPORATION-2017IN000991

PATIENT
  Sex: Female

DRUGS (3)
  1. STOOL SOFTENER (DOCUSATE) [Concomitant]
     Active Substance: DOCUSATE
     Indication: PRODUCT USED FOR UNKNOWN INDICATION
     Dosage: UNK
     Route: 065
  2. LEVOTHYROXINE. [Concomitant]
     Active Substance: LEVOTHYROXINE
     Indication: PRODUCT USED FOR UNKNOWN INDICATION
     Dosage: UNK
     Route: 065
  3. JAKAFI [Suspect]
     Active Substance: RUXOLITINIB
     Dosage: 10 MG, BID
     Route: 048
     Dates: start: 20150408

REACTIONS (9)
  - Arrhythmia [Unknown]
  - Multiple allergies [Unknown]
  - Platelet count increased [Unknown]
  - Memory impairment [Unknown]
  - Living in residential institution [Unknown]
  - Peripheral swelling [Recovered/Resolved]
  - Constipation [Unknown]
  - Drug dose omission [Unknown]
  - Eating disorder [Unknown]
